FAERS Safety Report 7986228-2 (Version None)
Quarter: 2011Q4

REPORT INFORMATION
  Report Type: 
  Country: None (occurrence: None)
  Receive Date: 20111216
  Receipt Date: 20111213
  Transmission Date: 20120403
  Serious: Yes (Hospitalization)
  Sender: FDA-Public Use
  Company Number: FR-GLAXOSMITHKLINE-B0768785A

PATIENT
  Sex: Male

DRUGS (18)
  1. BACTRIM [Suspect]
     Indication: ABDOMINAL SEPSIS
     Route: 048
     Dates: start: 20110910, end: 20110911
  2. ACETAMINOPHEN [Concomitant]
     Dosage: 1UNIT FOUR TIMES PER DAY
     Route: 042
     Dates: start: 20110823
  3. AMIKACIN [Concomitant]
     Route: 042
     Dates: start: 20110819, end: 20110822
  4. LOVENOX [Concomitant]
     Dosage: .4ML PER DAY
     Route: 058
     Dates: start: 20110823
  5. RABEPRAZOLE SODIUM [Concomitant]
  6. CANCIDAS [Suspect]
     Indication: ABDOMINAL SEPSIS
     Dosage: 70MG PER DAY
     Route: 042
     Dates: start: 20110904, end: 20110911
  7. VANCOMYCIN [Concomitant]
     Route: 042
  8. PIPERACILLIN AND TAZOBACTAM [Concomitant]
     Route: 042
  9. LEVOTHYROXINE SODIUM [Concomitant]
     Indication: HYPOTHYROIDISM
  10. OFLOXACIN [Suspect]
     Indication: ABDOMINAL SEPSIS
     Route: 048
     Dates: start: 20110910, end: 20110912
  11. AMINO ACID INJ [Concomitant]
     Dosage: 100ML THREE TIMES PER WEEK
     Route: 042
  12. CEFTAZIDIME SODIUM [Suspect]
     Indication: ABDOMINAL SEPSIS
     Dosage: 2G THREE TIMES PER DAY
     Route: 042
     Dates: start: 20110905, end: 20110910
  13. LEVOCARNIL [Concomitant]
     Dosage: 1G THREE TIMES PER DAY
     Route: 042
  14. ZYVOX [Suspect]
     Indication: ABDOMINAL SEPSIS
     Dosage: 600MG TWICE PER DAY
     Route: 042
     Dates: start: 20110905, end: 20110910
  15. ATARAX [Concomitant]
     Route: 048
     Dates: start: 20110911
  16. ACUPAN [Concomitant]
     Dosage: 120MG PER DAY
     Route: 042
     Dates: start: 20110823
  17. NEXIUM [Concomitant]
     Dosage: 40MG PER DAY
     Route: 048
     Dates: start: 20110823
  18. TIENAM [Concomitant]

REACTIONS (2)
  - URTICARIA [None]
  - DERMATITIS EXFOLIATIVE [None]
